FAERS Safety Report 8154473-1 (Version None)
Quarter: 2012Q1

REPORT INFORMATION
  Report Type: 
  Country: None (occurrence: None)
  Receive Date: 20120221
  Receipt Date: 20120214
  Transmission Date: 20120608
  Serious: Yes (Other)
  Sender: FDA-Public Use
  Company Number: CA-B.I. PHARMACEUTICALS,INC./RIDGEFIELD-2012-CN-00360CN

PATIENT
  Sex: Female
  Weight: 68 kg

DRUGS (4)
  1. PRADAXA [Suspect]
     Dosage: 220 MG
     Route: 048
  2. VITAMIN B-12 [Concomitant]
     Route: 065
  3. CALTRATE PLUS [Concomitant]
     Route: 065
  4. METOPROLOL TARTRATE [Concomitant]
     Route: 065

REACTIONS (6)
  - LYMPHOCYTE COUNT DECREASED [None]
  - MONOCYTE COUNT DECREASED [None]
  - NEUTROPHIL COUNT DECREASED [None]
  - WHITE BLOOD CELL COUNT DECREASED [None]
  - EOSINOPHIL COUNT DECREASED [None]
  - BASOPHIL COUNT DECREASED [None]
